FAERS Safety Report 4562387-9 (Version None)
Quarter: 2005Q1

REPORT INFORMATION
  Report Type: 
  Country: None (occurrence: None)
  Receive Date: 20050127
  Receipt Date: 20031006
  Transmission Date: 20050727
  Serious: No
  Sender: FDA-Public Use
  Company Number: US-BRISTOL-MYERS SQUIBB COMPANY-12403440

PATIENT
  Age: 47 Year
  Sex: Female

DRUGS (3)
  1. KENALOG [Suspect]
     Indication: RHINITIS ALLERGIC
     Route: 030
     Dates: start: 20030401
  2. KENALOG [Suspect]
     Indication: ASTHMA
     Route: 030
     Dates: start: 20030401
  3. SINGULAIR [Concomitant]
     Dates: start: 20030403

REACTIONS (1)
  - INJECTION SITE NECROSIS [None]
